FAERS Safety Report 8720204 (Version 2)
Quarter: 2012Q4

REPORT INFORMATION
  Report Type: 
  Country: US (occurrence: US)
  Receive Date: 20120813
  Receipt Date: 20120914
  Transmission Date: 20130627
  Serious: Yes (Death, Hospitalization)
  Sender: FDA-Public Use
  Company Number: US-BAXTER-2012BAX013563

PATIENT
  Age: 47 Year
  Sex: Female

DRUGS (3)
  1. DIANEAL PD2 [Suspect]
     Indication: END STAGE RENAL DISEASE (ESRD)
     Route: 033
     Dates: end: 20120709
  2. DIANEAL PD2 [Suspect]
     Route: 033
     Dates: end: 20120709
  3. DIANEAL PD2 (ULTRABAG) [Suspect]
     Indication: END STAGE RENAL DISEASE (ESRD)
     Route: 033
     Dates: end: 20120709

REACTIONS (2)
  - Cardiac disorder [Fatal]
  - Loss of consciousness [Unknown]
